FAERS Safety Report 12954981 (Version 3)
Quarter: 2017Q1

REPORT INFORMATION
  Report Type: Spontaneous
  Country: JP (occurrence: JP)
  Receive Date: 20161118
  Receipt Date: 20170131
  Transmission Date: 20170428
  Serious: Yes (Death, Other)
  Sender: FDA-Public Use
  Company Number: JP-ARIAD PHARMACEUTICALS, INC-2016JP007304

PATIENT
  Age: 69 Year
  Sex: Female

DRUGS (63)
  1. DIFLUCAN [Concomitant]
     Active Substance: FLUCONAZOLE
     Dosage: 200 MG, QD (AFTER DINNER)
     Route: 048
     Dates: start: 20161026, end: 20161102
  2. ADOFEED [Concomitant]
     Active Substance: FLURBIPROFEN
     Indication: PRODUCT USED FOR UNKNOWN INDICATION
     Dosage: 40 MG, QD
     Route: 061
     Dates: start: 20161026, end: 20161026
  3. ROPION [Concomitant]
     Active Substance: FLURBIPROFEN AXETIL
     Dosage: 3 DF, DAILY DOSE
     Route: 041
     Dates: start: 20161101, end: 20161101
  4. GLUCOSE [Concomitant]
     Active Substance: DEXTROSE
     Indication: PRODUCT USED FOR UNKNOWN INDICATION
     Dosage: 100 ML, DAILY DOSE
     Route: 041
     Dates: start: 20161027, end: 20161102
  5. VERAPAMIL HYDROCHLORIDE. [Concomitant]
     Active Substance: VERAPAMIL HYDROCHLORIDE
     Indication: PRODUCT USED FOR UNKNOWN INDICATION
     Dosage: 1 DF, DAILY DOSE
     Route: 041
     Dates: start: 20161027, end: 20161027
  6. MEROPENEM TRIHYDRATE [Concomitant]
     Active Substance: MEROPENEM
     Indication: PRODUCT USED FOR UNKNOWN INDICATION
     Dosage: UNK
     Route: 065
  7. MEROPENEM TRIHYDRATE [Concomitant]
     Active Substance: MEROPENEM
     Dosage: UNK
     Route: 065
  8. MEROPENEM TRIHYDRATE [Concomitant]
     Active Substance: MEROPENEM
     Dosage: 6 DF, DAILY DOSE
     Route: 041
     Dates: start: 20161027, end: 20161101
  9. MEROPENEM TRIHYDRATE [Concomitant]
     Active Substance: MEROPENEM
     Dosage: 2 DF, DAILY DOSE
     Route: 041
     Dates: start: 20161102, end: 20161102
  10. MICAFUNGIN SODIUM [Concomitant]
     Active Substance: MICAFUNGIN SODIUM
     Indication: INFECTION
     Dosage: 150 MG, DAILY DOSE
     Route: 065
     Dates: start: 20161027
  11. G-CSF [Concomitant]
     Active Substance: GRANULOCYTE COLONY-STIMULATING FACTOR NOS
     Indication: PRODUCT USED FOR UNKNOWN INDICATION
     Dosage: UNK
     Route: 065
  12. FEBURIC [Concomitant]
     Active Substance: FEBUXOSTAT
     Indication: PRODUCT USED FOR UNKNOWN INDICATION
     Dosage: 10 MG, DAILY DOSE
     Route: 048
     Dates: start: 20161008, end: 20161026
  13. AMIKACIN SULFATE. [Concomitant]
     Active Substance: AMIKACIN SULFATE
     Indication: PRODUCT USED FOR UNKNOWN INDICATION
     Dosage: 400 MG, DAILY DOSE
     Route: 041
     Dates: start: 20161020, end: 20161023
  14. SODIUM GUALENATE HYDRATE [Concomitant]
     Active Substance: SODIUM GUALENATE MONOHYDRATE
     Indication: PRODUCT USED FOR UNKNOWN INDICATION
     Dosage: 1 DF, DAILY DOSE (DIVIDED INTO 2 DOSES)
     Route: 002
     Dates: start: 20161026, end: 20161026
  15. SODIUM CHLORIDE. [Concomitant]
     Active Substance: SODIUM CHLORIDE
     Dosage: 100 ML, DAILY DOSE
     Route: 041
     Dates: start: 20161102, end: 20161102
  16. VERAPAMIL HYDROCHLORIDE. [Concomitant]
     Active Substance: VERAPAMIL HYDROCHLORIDE
     Dosage: 1 DF, DAILY DOSE
     Route: 041
     Dates: start: 20161101, end: 20161101
  17. VANCOMYCIN HYDROCHLORIDE. [Concomitant]
     Active Substance: VANCOMYCIN HYDROCHLORIDE
     Dosage: 2 DF, DAILY DOSE
     Route: 041
     Dates: start: 20161102, end: 20161102
  18. MEROPENEM TRIHYDRATE [Concomitant]
     Active Substance: MEROPENEM
     Dosage: 2 G, DAILY DOSE
     Route: 041
     Dates: start: 20161013, end: 20161026
  19. MAXIPIME [Concomitant]
     Active Substance: CEFEPIME HYDROCHLORIDE
     Indication: PRODUCT USED FOR UNKNOWN INDICATION
     Dosage: 4 G, DAILY DOSE
     Route: 041
     Dates: start: 20161010, end: 20161013
  20. AMITIZA [Concomitant]
     Active Substance: LUBIPROSTONE
     Indication: PRODUCT USED FOR UNKNOWN INDICATION
     Dosage: 48 ?G, DAILY DOSE(AFTER BREAKFAST AND DINNER)
     Route: 048
     Dates: start: 20161026, end: 20161102
  21. SODIUM GUALENATE HYDRATE [Concomitant]
     Active Substance: SODIUM GUALENATE MONOHYDRATE
     Dosage: 1 DF, DAILY DOSE (DIVIDED INTO 2 DOSES)
     Route: 002
     Dates: start: 20161028, end: 20161028
  22. SODIUM CHLORIDE. [Concomitant]
     Active Substance: SODIUM CHLORIDE
     Indication: PRODUCT USED FOR UNKNOWN INDICATION
     Dosage: 100 ML, DAILY DOSE
     Route: 041
     Dates: start: 20161026, end: 20161026
  23. SODIUM CHLORIDE. [Concomitant]
     Active Substance: SODIUM CHLORIDE
     Dosage: 300 ML, DAILY DOSE
     Route: 041
     Dates: start: 20161028, end: 20161028
  24. SODIUM CHLORIDE. [Concomitant]
     Active Substance: SODIUM CHLORIDE
     Dosage: 250 ML, DAILY DOSE
     Route: 041
     Dates: start: 20161029, end: 20161029
  25. SODIUM CHLORIDE. [Concomitant]
     Active Substance: SODIUM CHLORIDE
     Dosage: 1 DF, DAILY DOSE
     Route: 042
     Dates: start: 20161031, end: 20161102
  26. ROPION [Concomitant]
     Active Substance: FLURBIPROFEN AXETIL
     Dosage: 1 DF, DAILY DOSE
     Route: 041
     Dates: start: 20161030, end: 20161031
  27. VANCOMYCIN HYDROCHLORIDE. [Concomitant]
     Active Substance: VANCOMYCIN HYDROCHLORIDE
     Indication: PRODUCT USED FOR UNKNOWN INDICATION
     Dosage: 4 DF, DAILY DOSE
     Route: 041
     Dates: start: 20161101, end: 20161101
  28. GASTER [Concomitant]
     Active Substance: FAMOTIDINE
     Dosage: 20 MG, QD (AFTER DINNER)
     Route: 048
     Dates: start: 20161026, end: 20161102
  29. SOLITA [Concomitant]
     Dosage: 1000 ML, DAILY DOSE
     Route: 042
     Dates: start: 20161101, end: 20161101
  30. OMEPRAZOLE SODIUM [Concomitant]
     Active Substance: OMEPRAZOLE SODIUM
     Dosage: 2 DF, DAILY DOSE
     Route: 041
     Dates: start: 20161029, end: 20161101
  31. MICAFUNGIN SODIUM [Concomitant]
     Active Substance: MICAFUNGIN SODIUM
     Indication: PRODUCT USED FOR UNKNOWN INDICATION
  32. FLUCONAZOLE. [Concomitant]
     Active Substance: FLUCONAZOLE
     Indication: PRODUCT USED FOR UNKNOWN INDICATION
     Dosage: 200 MG, DAILY DOSE (AFTER DINNER)
     Route: 048
     Dates: start: 20161026, end: 20161030
  33. SODIUM CHLORIDE. [Concomitant]
     Active Substance: SODIUM CHLORIDE
     Dosage: 200 ML, DAILY DOSE
     Route: 041
     Dates: start: 20161101, end: 20161101
  34. COPPER SULFATE W/FERRIC CHLORIDE/POTASSIUM IO [Concomitant]
     Indication: PRODUCT USED FOR UNKNOWN INDICATION
     Dosage: 2 ML, DAILY DOSE
     Route: 042
     Dates: start: 20161027, end: 20161102
  35. DIGOSIN [Concomitant]
     Active Substance: DIGOXIN
     Indication: PRODUCT USED FOR UNKNOWN INDICATION
     Dosage: 0.5 DF, DAILY DOSE
     Route: 041
     Dates: start: 20161028, end: 20161028
  36. ICLUSIG [Suspect]
     Active Substance: PONATINIB
     Indication: ACUTE LYMPHOCYTIC LEUKAEMIA
     Dosage: 30 MG, DAILY DOSE
     Route: 048
     Dates: start: 20161013, end: 20161025
  37. GRANULOCYTE COLONY STIMULATING FACTOR [Concomitant]
     Active Substance: GRANULOCYTE COLONY-STIMULATING FACTOR NOS
     Indication: PRODUCT USED FOR UNKNOWN INDICATION
     Dosage: UNK
     Route: 065
  38. DIFLUCAN [Concomitant]
     Active Substance: FLUCONAZOLE
     Indication: PRODUCT USED FOR UNKNOWN INDICATION
     Dosage: 200 MG, DAILY DOSE
     Route: 048
     Dates: start: 20161007, end: 20161026
  39. FEBURIC [Concomitant]
     Active Substance: FEBUXOSTAT
     Dosage: 10 MG, DAILY DOSE(AFTER BREAKFAST)
     Route: 048
     Dates: start: 20161026, end: 20161102
  40. ZYVOX [Concomitant]
     Active Substance: LINEZOLID
     Indication: PRODUCT USED FOR UNKNOWN INDICATION
     Dosage: 600 MG, DAILY DOSE
     Route: 041
     Dates: start: 20161023, end: 20161026
  41. CALONAL [Concomitant]
     Active Substance: ACETAMINOPHEN
     Indication: PRODUCT USED FOR UNKNOWN INDICATION
     Dosage: 2 DF, PRN (DURING PYREXIA)
     Route: 048
     Dates: start: 20161026, end: 20161102
  42. SODIUM CHLORIDE. [Concomitant]
     Active Substance: SODIUM CHLORIDE
     Dosage: 250 ML, DAILY DOSE
     Route: 041
     Dates: start: 20161027, end: 20161027
  43. SODIUM CHLORIDE. [Concomitant]
     Active Substance: SODIUM CHLORIDE
     Dosage: 2 DF, DAILY DOSE
     Route: 042
     Dates: start: 20161027, end: 20161030
  44. SOLITA [Concomitant]
     Dosage: 500 ML, DAILY DOSE
     Route: 042
     Dates: start: 20161102, end: 20161102
  45. ROPION [Concomitant]
     Active Substance: FLURBIPROFEN AXETIL
     Dosage: 1 DF, DAILY DOSE
     Route: 041
     Dates: start: 20161102, end: 20161102
  46. TAKEPRON [Concomitant]
     Active Substance: LANSOPRAZOLE
     Indication: PRODUCT USED FOR UNKNOWN INDICATION
     Dosage: 30 MG, DAILY DOSE
     Route: 048
     Dates: start: 20161008, end: 20161012
  47. GASTER [Concomitant]
     Active Substance: FAMOTIDINE
     Indication: PRODUCT USED FOR UNKNOWN INDICATION
     Dosage: 20 MG, DAILY DOSE
     Route: 048
     Dates: start: 20161013, end: 20161026
  48. MAGNESIUM OXIDE. [Concomitant]
     Active Substance: MAGNESIUM OXIDE
     Dosage: 990 MG, DAILY DOSE (AFTER EACH MEAL)
     Route: 048
     Dates: start: 20161026, end: 20161102
  49. NEUTROGIN [Concomitant]
     Active Substance: LENOGRASTIM
     Dosage: 1 DF, DAILY DOSE
     Route: 058
     Dates: start: 20161027, end: 20161101
  50. MAGMITT [Concomitant]
     Active Substance: MAGNESIUM OXIDE
     Indication: PRODUCT USED FOR UNKNOWN INDICATION
     Dosage: 660 MG,DAILY DOSE (AFTER LUNCH AND DINNER)
     Route: 048
     Dates: start: 20161026, end: 20161031
  51. GENTAMICIN SULFATE. [Concomitant]
     Active Substance: GENTAMICIN SULFATE
     Indication: PRODUCT USED FOR UNKNOWN INDICATION
     Dosage: 1 DF, QD
     Route: 061
     Dates: start: 20161026, end: 20161026
  52. DIGOSIN [Concomitant]
     Active Substance: DIGOXIN
     Dosage: 0.5 DF, DAILY DOSE
     Route: 041
     Dates: start: 20161102, end: 20161102
  53. OMEPRAZOLE SODIUM [Concomitant]
     Active Substance: OMEPRAZOLE SODIUM
     Indication: PRODUCT USED FOR UNKNOWN INDICATION
     Dosage: 1 DF, DAILY DOSE
     Route: 041
     Dates: start: 20161028, end: 20161028
  54. MORPHINE HYDROCHLORIDE [Concomitant]
     Active Substance: MORPHINE HYDROCHLORIDE
     Indication: PRODUCT USED FOR UNKNOWN INDICATION
     Dosage: 1 DF, DAILY DOSE
     Route: 041
     Dates: start: 20161102, end: 20161102
  55. ICLUSIG [Suspect]
     Active Substance: PONATINIB
     Dosage: 45 MG, DAILY DOSE
     Route: 048
     Dates: start: 20161026, end: 20161028
  56. MEROPENEM TRIHYDRATE [Concomitant]
     Active Substance: MEROPENEM
     Dosage: 4 DF, DAILY DOSE
     Route: 041
     Dates: start: 20161026, end: 20161026
  57. MAGNESIUM OXIDE. [Concomitant]
     Active Substance: MAGNESIUM OXIDE
     Indication: PRODUCT USED FOR UNKNOWN INDICATION
     Dosage: 1980 MG, DAILY DOSE
     Route: 048
     Dates: start: 20161007, end: 20161026
  58. NEUTROGIN [Concomitant]
     Active Substance: LENOGRASTIM
     Indication: PRODUCT USED FOR UNKNOWN INDICATION
     Dosage: 100 ?G, DAILY DOSE
     Route: 058
     Dates: start: 20161019, end: 20161026
  59. SODIUM CHLORIDE. [Concomitant]
     Active Substance: SODIUM CHLORIDE
     Dosage: 300 ML, DAILY DOSE
     Route: 041
     Dates: start: 20161030, end: 20161031
  60. SOLITA [Concomitant]
     Indication: PRODUCT USED FOR UNKNOWN INDICATION
     Dosage: 500 ML, DAILY DOSE
     Route: 042
     Dates: start: 20161026, end: 20161031
  61. ROPION [Concomitant]
     Active Substance: FLURBIPROFEN AXETIL
     Indication: PRODUCT USED FOR UNKNOWN INDICATION
     Dosage: 1 DF, DAILY DOSE
     Route: 041
     Dates: start: 20161027, end: 20161028
  62. FUNGUARD [Concomitant]
     Active Substance: MICAFUNGIN SODIUM
     Indication: PRODUCT USED FOR UNKNOWN INDICATION
     Dosage: 3 DF, DAILY DOSE
     Route: 041
     Dates: start: 20161027, end: 20161102
  63. BETAMETHASONE SODIUM PHOSPHATE [Concomitant]
     Active Substance: BETAMETHASONE SODIUM PHOSPHATE
     Indication: PRODUCT USED FOR UNKNOWN INDICATION
     Dosage: 1 DF, DAILY DOSE
     Route: 041
     Dates: start: 20161102, end: 20161102

REACTIONS (5)
  - Febrile neutropenia [Unknown]
  - Sepsis [Fatal]
  - Cholecystitis acute [Not Recovered/Not Resolved]
  - Disseminated intravascular coagulation [Unknown]
  - Depression [Unknown]

NARRATIVE: CASE EVENT DATE: 20161014
